FAERS Safety Report 18606238 (Version 3)
Quarter: 2021Q3

REPORT INFORMATION
  Report Type: Spontaneous
  Country: DE (occurrence: DE)
  Receive Date: 20201211
  Receipt Date: 20210924
  Transmission Date: 20211014
  Serious: Yes (Other)
  Sender: FDA-Public Use
  Company Number: DE-ASTRAZENECA-2020SF63188

PATIENT
  Age: 90 Year
  Sex: Male
  Weight: 80 kg

DRUGS (5)
  1. FASENRA [Suspect]
     Active Substance: BENRALIZUMAB
     Indication: ASTHMA
     Route: 058
     Dates: start: 201902
  2. TIOTROPIUM [Concomitant]
     Active Substance: TIOTROPIUM
     Dosage: 2?0?0
     Route: 055
  3. SYMBICORT [Suspect]
     Active Substance: BUDESONIDE\FORMOTEROL FUMARATE DIHYDRATE
     Indication: CHRONIC OBSTRUCTIVE PULMONARY DISEASE
     Dosage: 320/9 UG, 2 INHALATION IN THE MORNING, 2 INHALATION IN THE EVENING
     Route: 055
     Dates: start: 2019
  4. PREDNISOLONE. [Concomitant]
     Active Substance: PREDNISOLONE
     Dosage: 40 MG AS NEEDED
     Route: 048
  5. SYMBICORT [Suspect]
     Active Substance: BUDESONIDE\FORMOTEROL FUMARATE DIHYDRATE
     Indication: CHRONIC OBSTRUCTIVE PULMONARY DISEASE
     Dosage: 320/9 UG, 2 INHALATION IN THE MORNING, 2 INHALATION IN THE EVENING
     Route: 055
     Dates: start: 2016

REACTIONS (5)
  - Asthma-chronic obstructive pulmonary disease overlap syndrome [Recovering/Resolving]
  - Dyspnoea exertional [Recovering/Resolving]
  - Chronic obstructive pulmonary disease [Recovered/Resolved]
  - Asthma [Recovering/Resolving]
  - Wheezing [Unknown]

NARRATIVE: CASE EVENT DATE: 201804
